FAERS Safety Report 6988556-6 (Version None)
Quarter: 2010Q3

REPORT INFORMATION
  Report Type: 
  Country: None (occurrence: None)
  Receive Date: 20100916
  Receipt Date: 20100905
  Transmission Date: 20110219
  Serious: Yes (Other)
  Sender: FDA-Public Use
  Company Number: US-JNJCH-2010020366

PATIENT
  Sex: Male

DRUGS (1)
  1. LUBRIDERM DAILY MOISTURE [Suspect]
     Indication: DRY SKIN
     Dosage: TEXT:UNSPECIFIED
     Route: 061

REACTIONS (2)
  - CHEMICAL INJURY [None]
  - PHYSICAL PRODUCT LABEL ISSUE [None]
